FAERS Safety Report 6038363-6 (Version None)
Quarter: 2009Q1

REPORT INFORMATION
  Report Type: 
  Country: None (occurrence: None)
  Receive Date: 20090114
  Receipt Date: 20090114
  Transmission Date: 20090719
  Serious: Yes (Hospitalization)
  Sender: FDA-Public Use
  Company Number: None

PATIENT
  Age: 76 Year
  Sex: Male
  Weight: 113 kg

DRUGS (1)
  1. SPIRONOLACTONE [Suspect]
     Dosage: 50MG BID PO
     Route: 048

REACTIONS (1)
  - BLOOD POTASSIUM INCREASED [None]
